FAERS Safety Report 5601654-4 (Version None)
Quarter: 2008Q1

REPORT INFORMATION
  Report Type: 
  Country: None (occurrence: None)
  Receive Date: 20080124
  Receipt Date: 20080117
  Transmission Date: 20080703
  Serious: Yes (Hospitalization)
  Sender: FDA-Public Use
  Company Number: JP-BOEHRINGER INGELHEIM PHARMACEUTICALS, INC.-2008-BP-00529NB

PATIENT
  Sex: Female

DRUGS (12)
  1. MOBIC [Suspect]
     Indication: SCIATICA
     Route: 048
     Dates: start: 20071107, end: 20071125
  2. ADETPHOS [Suspect]
     Indication: DIZZINESS
     Route: 048
  3. XYLOCAINE [Suspect]
     Indication: SCIATICA
     Route: 065
     Dates: start: 20071107, end: 20071107
  4. KENACORT [Suspect]
     Indication: SCIATICA
     Route: 065
     Dates: start: 20071107, end: 20071121
  5. ROSEMORGEN [Suspect]
     Indication: SCIATICA
     Route: 065
     Dates: start: 20071107, end: 20071107
  6. TOWARAT L [Concomitant]
     Indication: HYPERTENSION
     Route: 048
  7. TOYOFAROL [Concomitant]
     Route: 048
  8. SELBEX [Concomitant]
     Route: 048
  9. DIFENIDOLIN [Concomitant]
     Indication: DIZZINESS
     Route: 048
  10. NE-KOTANI [Concomitant]
     Route: 048
  11. DIAZEPAM [Concomitant]
     Route: 048
  12. INNOLET 30R [Concomitant]
     Indication: DIABETES MELLITUS
     Route: 058

REACTIONS (1)
  - ECZEMA [None]
